FAERS Safety Report 14413639 (Version 1)
Quarter: 2018Q1

REPORT INFORMATION
  Report Type: Spontaneous
  Country: US (occurrence: US)
  Receive Date: 20180118
  Receipt Date: 20180118
  Transmission Date: 20180509
  Serious: No
  Sender: FDA-Public Use
  Company Number: None

PATIENT
  Sex: Male
  Weight: 114.75 kg

DRUGS (13)
  1. PRIMIDONE. [Concomitant]
     Active Substance: PRIMIDONE
  2. ASPIRIN. [Concomitant]
     Active Substance: ASPIRIN
  3. UBIQUINOL QH [Concomitant]
  4. LOSARTAN. [Concomitant]
     Active Substance: LOSARTAN
  5. VITAMIN C [Concomitant]
     Active Substance: ASCORBIC ACID
  6. CLA [Concomitant]
  7. LOSARTAN 25MG [Suspect]
     Active Substance: LOSARTAN
     Indication: HYPERTENSION
     Dosage: ?          QUANTITY:90 TABLET(S);?
     Route: 048
     Dates: start: 20171101, end: 20180108
  8. LATANOPROST. [Concomitant]
     Active Substance: LATANOPROST
  9. COD LIVER OIL [Concomitant]
     Active Substance: COD LIVER OIL
  10. METFORMIN [Concomitant]
     Active Substance: METFORMIN HYDROCHLORIDE
  11. QUERCETIN [Concomitant]
     Active Substance: QUERCETIN
  12. VITAMIN B12 [Concomitant]
     Active Substance: CYANOCOBALAMIN
  13. VITAMIN D [Concomitant]
     Active Substance: CHOLECALCIFEROL

REACTIONS (1)
  - Drug ineffective [None]

NARRATIVE: CASE EVENT DATE: 20180108
